FAERS Safety Report 7171606-4 (Version None)
Quarter: 2010Q4

REPORT INFORMATION
  Report Type: 
  Country: None (occurrence: None)
  Receive Date: 20101217
  Receipt Date: 20100203
  Transmission Date: 20110411
  Serious: No
  Sender: FDA-Public Use
  Company Number: US-AMGEN-KDL390442

PATIENT

DRUGS (2)
  1. ENBREL [Suspect]
     Indication: RHEUMATOID ARTHRITIS
     Dosage: 50 MG, QWK
     Route: 058
     Dates: start: 20090129
  2. LEFLUNOMIDE [Concomitant]
     Dosage: 20 MG, QD

REACTIONS (8)
  - IMPAIRED HEALING [None]
  - PRURITUS [None]
  - SCAB [None]
  - SINUSITIS [None]
  - SKIN ATROPHY [None]
  - SKIN LESION [None]
  - SKIN ULCER [None]
  - WOUND HAEMORRHAGE [None]
